FAERS Safety Report 4800700-5 (Version None)
Quarter: 2005Q4

REPORT INFORMATION
  Report Type: 
  Country: None (occurrence: None)
  Receive Date: 20051017
  Receipt Date: 20051005
  Transmission Date: 20060501
  Serious: Yes (Hospitalization)
  Sender: FDA-Public Use
  Company Number: US-MERCK-0510USA03423

PATIENT
  Age: 40 Year
  Sex: Female
  Weight: 65 kg

DRUGS (10)
  1. VIOXX [Suspect]
     Indication: RHEUMATOID ARTHRITIS
     Route: 048
     Dates: start: 20020101, end: 20040901
  2. HUMULIN [Concomitant]
     Route: 065
  3. NPH INSULIN [Concomitant]
     Route: 065
  4. PREDNISONE [Concomitant]
     Route: 065
  5. SULFASALAZINE [Concomitant]
     Route: 065
  6. FOSAMAX [Concomitant]
     Route: 065
  7. METHOTREXATE [Concomitant]
     Route: 065
  8. FOLIC ACID [Concomitant]
     Route: 065
  9. CALCIUM (UNSPECIFIED) [Concomitant]
     Route: 065
  10. VITAMINS (UNSPECIFIED) [Concomitant]
     Route: 065

REACTIONS (3)
  - COLLAPSE OF LUNG [None]
  - FOOT OPERATION [None]
  - MYOCARDIAL INFARCTION [None]
